FAERS Safety Report 18232240 (Version 1)
Quarter: 2020Q3

REPORT INFORMATION
  Report Type: Spontaneous
  Country: US (occurrence: US)
  Receive Date: 20200904
  Receipt Date: 20200904
  Transmission Date: 20201103
  Serious: No
  Sender: FDA-Public Use
  Company Number: US-AMERICAN REGENT INC-2019001899

PATIENT
  Sex: Female

DRUGS (1)
  1. INJECTAFER [Suspect]
     Active Substance: FERRIC CARBOXYMALTOSE
     Indication: PRODUCT USED FOR UNKNOWN INDICATION
     Dosage: 750 MILLIGRAM IN 250 ML OF NS, SINGLE
     Route: 042
     Dates: start: 20190822, end: 20190822

REACTIONS (5)
  - Throat tightness [Recovered/Resolved]
  - Flushing [Recovered/Resolved]
  - Dysphagia [Recovered/Resolved]
  - Anxiety [Recovered/Resolved]
  - Throat irritation [Recovered/Resolved]

NARRATIVE: CASE EVENT DATE: 20190822
